FAERS Safety Report 21659864 (Version 1)
Quarter: 2022Q4

REPORT INFORMATION
  Report Type: Spontaneous
  Country: US (occurrence: US)
  Receive Date: 20221130
  Receipt Date: 20221130
  Transmission Date: 20230112
  Serious: Yes (Other)
  Sender: FDA-Public Use
  Company Number: US-SPECGX-T202202356

PATIENT
  Age: 88 Year
  Sex: Female

DRUGS (2)
  1. TOFRANIL [Suspect]
     Active Substance: IMIPRAMINE HYDROCHLORIDE
     Indication: Product used for unknown indication
     Dosage: UNK (3 AT BEDTIME)
     Route: 065
  2. TOFRANIL [Suspect]
     Active Substance: IMIPRAMINE HYDROCHLORIDE
     Dosage: UNK (4 AT BEDTIME)
     Route: 065

REACTIONS (14)
  - Near death experience [Unknown]
  - Urinary tract infection [Unknown]
  - Illness [Unknown]
  - Heart rate decreased [Unknown]
  - Gait disturbance [Unknown]
  - Feeling abnormal [Unknown]
  - Loss of personal independence in daily activities [Unknown]
  - Anxiety [Unknown]
  - Visual impairment [Unknown]
  - Panic attack [Unknown]
  - Depression [Unknown]
  - Asthenia [Unknown]
  - Eye pain [Unknown]
  - Insomnia [Unknown]
